FAERS Safety Report 6469609-8 (Version None)
Quarter: 2009Q4

REPORT INFORMATION
  Report Type: 
  Country: None (occurrence: None)
  Receive Date: 20091202
  Receipt Date: 20091202
  Transmission Date: 20100525
  Serious: Yes (Hospitalization)
  Sender: FDA-Public Use
  Company Number: None

PATIENT
  Sex: Female
  Weight: 65.5 kg

DRUGS (3)
  1. CARBOPLATIN [Suspect]
     Dosage: 1795 MG
  2. ERBITUX [Suspect]
     Dosage: 3694.5 MG
  3. TAXOL [Suspect]
     Dosage: 644 MG

REACTIONS (1)
  - NEUTROPHIL COUNT DECREASED [None]
